FAERS Safety Report 7724092-7 (Version None)
Quarter: 2011Q3

REPORT INFORMATION
  Report Type: 
  Country: None (occurrence: None)
  Receive Date: 20110901
  Receipt Date: 20110822
  Transmission Date: 20111222
  Serious: Yes (Hospitalization, Disabling)
  Sender: FDA-Public Use
  Company Number: FR-JNJFOC-20110710571

PATIENT
  Sex: Male
  Weight: 118 kg

DRUGS (6)
  1. XARELTO [Suspect]
     Route: 048
  2. NEBIVOLOL HCL [Concomitant]
  3. LOVENOX [Suspect]
     Indication: PRODUCT USED FOR UNKNOWN INDICATION
     Dates: start: 20110127
  4. ATORVASTATIN CALCIUM [Concomitant]
  5. EXFORGE [Concomitant]
  6. XARELTO [Suspect]
     Indication: KNEE ARTHROPLASTY
     Route: 048
     Dates: start: 20110128, end: 20110206

REACTIONS (3)
  - INFECTED SKIN ULCER [None]
  - ANAL SPHINCTER ATONY [None]
  - SPINAL CORD INFARCTION [None]
